FAERS Safety Report 12661848 (Version 1)
Quarter: 2016Q3

REPORT INFORMATION
  Report Type: Spontaneous
  Country: NO (occurrence: NO)
  Receive Date: 20160817
  Receipt Date: 20160817
  Transmission Date: 20161109
  Serious: Yes (Life-Threatening, Hospitalization, Other)
  Sender: FDA-Public Use
  Company Number: NO-PFIZER INC-2016384502

PATIENT
  Age: 60 Year
  Sex: Female

DRUGS (8)
  1. FLUOROURACIL HOSPIRA /00098801/ [Concomitant]
     Dosage: UNK
  2. OXALIPLATIN. [Suspect]
     Active Substance: OXALIPLATIN
     Indication: PANCREATIC CARCINOMA METASTATIC
     Route: 042
     Dates: start: 20150415, end: 20160706
  3. FRAGMIN [Concomitant]
     Active Substance: DALTEPARIN SODIUM
  4. IRINOTECAN HOSPIRA [Concomitant]
     Active Substance: IRINOTECAN
     Dosage: UNK
  5. ZOCOR [Concomitant]
     Active Substance: SIMVASTATIN
  6. LEVAXIN [Concomitant]
     Active Substance: LEVOTHYROXINE SODIUM
  7. CALCIUMFOLINAT [Concomitant]
     Active Substance: LEUCOVORIN CALCIUM
     Dosage: UNK
  8. KALEORID [Concomitant]
     Active Substance: POTASSIUM CHLORIDE

REACTIONS (3)
  - Anaphylactic reaction [Recovered/Resolved]
  - Dyspnoea [Recovered/Resolved]
  - Cyanosis [Recovered/Resolved]

NARRATIVE: CASE EVENT DATE: 20160706
